FAERS Safety Report 9146612 (Version 2)
Quarter: 2013Q2

REPORT INFORMATION
  Report Type: Spontaneous
  Country: US (occurrence: US)
  Receive Date: 20130307
  Receipt Date: 20130417
  Transmission Date: 20140414
  Serious: Yes (Hospitalization, Congenital Anomaly)
  Sender: FDA-Public Use
  Company Number: US-JNJFOC-20130302005

PATIENT
  Sex: Male

DRUGS (2)
  1. TOPAMAX [Suspect]
     Indication: FOETAL EXPOSURE DURING PREGNANCY
     Route: 064
  2. NATALCARE PLUS [Concomitant]
     Route: 064

REACTIONS (16)
  - Atrial septal defect [Recovering/Resolving]
  - Ventricular septal defect [Recovering/Resolving]
  - Mitral valve incompetence [Recovering/Resolving]
  - Tricuspid valve incompetence [Recovering/Resolving]
  - Cardiomegaly [Recovering/Resolving]
  - Atrial septal defect [Recovering/Resolving]
  - Respiratory failure [Unknown]
  - Hypertension [Unknown]
  - Atrioventricular block [Recovering/Resolving]
  - Gastrooesophageal reflux disease [Unknown]
  - Positional plagiocephaly [Recovering/Resolving]
  - Torticollis [Recovering/Resolving]
  - Aortic valve incompetence [Recovering/Resolving]
  - Sinus bradycardia [Recovering/Resolving]
  - Pectus excavatum [Recovering/Resolving]
  - Otitis media [Unknown]
